FAERS Safety Report 6681238-X (Version None)
Quarter: 2010Q2

REPORT INFORMATION
  Report Type: 
  Country: None (occurrence: None)
  Receive Date: 20100414
  Receipt Date: 20090423
  Transmission Date: 20101027
  Serious: No
  Sender: FDA-Public Use
  Company Number: US-KINGPHARMUSA00001-K200900487

PATIENT
  Age: 70 Year
  Sex: Female

DRUGS (1)
  1. SKELAXIN [Suspect]
     Indication: PAIN
     Dosage: 800 MG, SINGLE
     Route: 048
     Dates: start: 20081231, end: 20081231

REACTIONS (3)
  - CHEST DISCOMFORT [None]
  - DYSPNOEA [None]
  - PAIN [None]
